FAERS Safety Report 12684699 (Version 1)
Quarter: 2016Q3

REPORT INFORMATION
  Report Type: Spontaneous
  Country: NZ (occurrence: NZ)
  Receive Date: 20160825
  Receipt Date: 20160825
  Transmission Date: 20161109
  Serious: Yes (Hospitalization)
  Sender: FDA-Public Use
  Company Number: NZ-PFIZER INC-2016377728

PATIENT
  Age: 50 Year
  Sex: Female

DRUGS (3)
  1. DOMPERIDONE [Concomitant]
     Active Substance: DOMPERIDONE
     Indication: PROPHYLAXIS OF NAUSEA AND VOMITING
     Dosage: 40 MG, UNK
     Route: 048
     Dates: start: 20160718, end: 20160801
  2. CISPLATIN. [Suspect]
     Active Substance: CISPLATIN
     Indication: TONSIL CANCER
     Dosage: 70 MG, IN 1000ML 0.9% SODIUM CHLORIDE
     Route: 042
     Dates: start: 20160718, end: 20160801
  3. SODIUM CHLORIDE. [Suspect]
     Active Substance: SODIUM CHLORIDE
     Indication: TONSIL CANCER
     Dosage: 70 MG CISPLATIN, IN 1000ML 0.9% SODIUM CHLORIDE
     Route: 042
     Dates: start: 20160718, end: 20160801

REACTIONS (4)
  - Pyrexia [Recovered/Resolved]
  - Rash pustular [Recovered/Resolved]
  - Erythema [Recovered/Resolved]
  - Vomiting [Recovered/Resolved]

NARRATIVE: CASE EVENT DATE: 20160801
